FAERS Safety Report 5378330-9 (Version None)
Quarter: 2007Q2

REPORT INFORMATION
  Report Type: 
  Country: None (occurrence: None)
  Receive Date: 20070530
  Receipt Date: 20070219
  Transmission Date: 20071010
  Serious: No
  Sender: FDA-Public Use
  Company Number: 2007PV030290

PATIENT
  Age: 40 Year
  Sex: Male
  Weight: 116.1208 kg

DRUGS (5)
  1. BYETTA [Suspect]
     Indication: DIABETES MELLITUS NON-INSULIN-DEPENDENT
     Dosage: 5 MCG; BID; SC
     Route: 058
     Dates: start: 20070216
  2. TRAMADOL HCL [Concomitant]
  3. GABAPENTIN [Concomitant]
  4. AVAMDAMET [Concomitant]
  5. ROZEREM [Concomitant]

REACTIONS (1)
  - MUSCLE TWITCHING [None]
